FAERS Safety Report 19237970 (Version 3)
Quarter: 2021Q2

REPORT INFORMATION
  Report Type: Spontaneous
  Country: GB (occurrence: GB)
  Receive Date: 20210510
  Receipt Date: 20210525
  Transmission Date: 20210717
  Serious: Yes (Hospitalization, Other)
  Sender: FDA-Public Use
  Company Number: GB-SUN PHARMACEUTICAL INDUSTRIES LTD-2021RR-295724

PATIENT
  Age: 76 Year
  Sex: Male

DRUGS (3)
  1. IMRALDI [Suspect]
     Active Substance: ADALIMUMAB
     Indication: RHEUMATOID ARTHRITIS
     Dosage: 40 MILLIGRAM, 1DOSE/2 WEEKS
     Route: 058
     Dates: start: 20200327
  2. CODEINE [Suspect]
     Active Substance: CODEINE
     Indication: PRODUCT USED FOR UNKNOWN INDICATION
     Dosage: UNKNOWN
     Route: 065
  3. IMRALDI [Suspect]
     Active Substance: ADALIMUMAB
     Indication: PRODUCT USED FOR UNKNOWN INDICATION
     Dosage: UNK
     Route: 065

REACTIONS (8)
  - Traumatic lung injury [Unknown]
  - Rheumatoid arthritis [Unknown]
  - Immunosuppression [Unknown]
  - Dizziness [Unknown]
  - Lower respiratory tract infection [Unknown]
  - Myocardial infarction [Unknown]
  - Weight decreased [Unknown]
  - Cardiac failure [Unknown]
